FAERS Safety Report 7110900-X (Version None)
Quarter: 2010Q4

REPORT INFORMATION
  Report Type: 
  Country: None (occurrence: None)
  Receive Date: 20101118
  Receipt Date: 20101116
  Transmission Date: 20110411
  Serious: Yes (Hospitalization)
  Sender: FDA-Public Use
  Company Number: US-SHIRE-ALL1-2010-06046

PATIENT
  Sex: Male
  Weight: 58.957 kg

DRUGS (6)
  1. FOSRENOL [Suspect]
     Indication: HYPERPHOSPHATAEMIA
     Dosage: 1000 MG, 3X/DAY:TID
     Route: 048
     Dates: start: 20050101
  2. FOSRENOL [Suspect]
     Indication: NEPHROPATHY
  3. METOPROLOL [Concomitant]
     Indication: HYPERTENSION
     Dosage: 50 MG, 1X/DAY:QD
     Route: 048
     Dates: start: 20040101
  4. SENSIPAR [Concomitant]
     Indication: DIALYSIS
     Dosage: 30 MG, 1X/DAY:QD
     Route: 048
     Dates: start: 20040101
  5. REMREPLEX [Concomitant]
     Indication: DIALYSIS
     Dosage: 1 MG, 1X/DAY:QD
     Route: 048
     Dates: start: 20040101
  6. SYNTHROID [Concomitant]
     Indication: HYPOTHYROIDISM
     Dosage: 100 ?G, 1X/DAY:QD
     Route: 048

REACTIONS (2)
  - CARDIAC VALVE DISEASE [None]
  - DIARRHOEA [None]
